FAERS Safety Report 18217946 (Version 2)
Quarter: 2020Q3

REPORT INFORMATION
  Report Type: Report from Study
  Country: CO (occurrence: CO)
  Receive Date: 20200901
  Receipt Date: 20200922
  Transmission Date: 20201103
  Serious: Yes (Hospitalization)
  Sender: FDA-Public Use
  Company Number: NVSC2020CO214464

PATIENT
  Sex: Female
  Weight: 51 kg

DRUGS (4)
  1. FEMARA [Suspect]
     Active Substance: LETROZOLE
     Indication: BREAST CANCER METASTATIC
     Dosage: 2.5 MG, QD (STARTED 3 MONTHS AGO ADN STOPED ONE WEEK AGO)
     Route: 048
     Dates: start: 2019
  2. KISQALI [Suspect]
     Active Substance: RIBOCICLIB
     Indication: BREAST CANCER METASTATIC
     Dosage: 600 MG, QD (TABLET OF 200MG )(STARTED 3 MONTHS AGO ADN STOPED ONE WEEK AGO)
     Route: 048
  3. KISQALI [Suspect]
     Active Substance: RIBOCICLIB
     Dosage: 600 MG, QD (2 MONTHS AGO)
     Route: 048
     Dates: start: 2019
  4. OXYCODONE [Concomitant]
     Active Substance: OXYCODONE
     Indication: PAIN
     Dosage: 10 MG, Q12H
     Route: 048

REACTIONS (10)
  - Asphyxia [Unknown]
  - SARS-CoV-2 test positive [Unknown]
  - Malaise [Recovered/Resolved]
  - Dyspnoea [Unknown]
  - Pleural effusion [Unknown]
  - Respiratory tract infection [Recovered/Resolved]
  - Product dose omission issue [Unknown]
  - Metastases to lung [Unknown]
  - Pyrexia [Recovered/Resolved]
  - Pneumonia [Recovered/Resolved]
